FAERS Safety Report 8020950-7 (Version None)
Quarter: 2011Q4

REPORT INFORMATION
  Report Type: 
  Country: None (occurrence: None)
  Receive Date: 20111228
  Receipt Date: 20111206
  Transmission Date: 20120403
  Serious: Yes (Hospitalization)
  Sender: FDA-Public Use
  Company Number: ADR-5031-043

PATIENT
  Age: 74 Year
  Sex: Female
  Weight: 90.7194 kg

DRUGS (6)
  1. BENADRYL [Concomitant]
  2. ASPIRIN [Concomitant]
  3. TORSEMIDE [Suspect]
     Indication: FLUID RETENTION
     Dosage: 20 MG/ DAY + ORAL
     Route: 048
     Dates: start: 20111129, end: 20111203
  4. ATENOLOL [Concomitant]
  5. CLAVIX-75 MG [Concomitant]
  6. ZOCOR [Concomitant]

REACTIONS (4)
  - HEAT STROKE [None]
  - INITIAL INSOMNIA [None]
  - RASH [None]
  - PRURITUS [None]
